FAERS Safety Report 20966258 (Version 1)
Quarter: 2022Q2

REPORT INFORMATION
  Report Type: Spontaneous
  Country: US (occurrence: US)
  Receive Date: 20220616
  Receipt Date: 20220616
  Transmission Date: 20220721
  Serious: No
  Sender: FDA-Public Use
  Company Number: US-UNITED THERAPEUTICS-UNT-2022-011987

PATIENT
  Sex: Female

DRUGS (2)
  1. REMODULIN [Suspect]
     Active Substance: TREPROSTINIL
     Indication: Pulmonary arterial hypertension
     Dosage: UNK, CONTINUING
     Route: 058
     Dates: start: 20220413
  2. REMODULIN [Suspect]
     Active Substance: TREPROSTINIL
     Dosage: 0.02129 ?G/KG, CONTINUING
     Route: 058

REACTIONS (3)
  - Muscle spasms [Recovered/Resolved]
  - Nausea [Unknown]
  - Gastric disorder [Unknown]
